FAERS Safety Report 10039417 (Version 1)
Quarter: 2014Q1

REPORT INFORMATION
  Report Type: Spontaneous
  Country: AU (occurrence: AU)
  Receive Date: 20140326
  Receipt Date: 20140326
  Transmission Date: 20141002
  Serious: Yes (Hospitalization)
  Sender: FDA-Public Use
  Company Number: PHHY2014AU032351

PATIENT
  Age: 55 Year
  Sex: Male

DRUGS (2)
  1. METFORMIN [Suspect]
     Indication: TYPE 2 DIABETES MELLITUS
     Dosage: 2000 MG, PERDAY
  2. METFORMIN [Suspect]
     Dosage: 1000 MG, PERDAY

REACTIONS (5)
  - Blood lactic acid increased [Recovered/Resolved]
  - Blood pH decreased [Unknown]
  - Blood creatinine increased [Unknown]
  - Glomerular filtration rate decreased [Unknown]
  - Cardiac arrest [Unknown]
